FAERS Safety Report 16258011 (Version 2)
Quarter: 2019Q2

REPORT INFORMATION
  Report Type: Spontaneous
  Country: US (occurrence: US)
  Receive Date: 20190430
  Receipt Date: 20190503
  Transmission Date: 20190711
  Serious: Yes (Hospitalization)
  Sender: FDA-Public Use
  Company Number: US-ELI_LILLY_AND_COMPANY-US201904011970

PATIENT
  Sex: Female

DRUGS (4)
  1. HUMULIN R [Suspect]
     Active Substance: INSULIN HUMAN
     Indication: TYPE 2 DIABETES MELLITUS
     Dosage: 100 INTERNATIONAL UNIT, EACH MORNING
     Route: 058
     Dates: start: 2015, end: 2017
  2. HUMULIN R U-500 [Suspect]
     Active Substance: INSULIN HUMAN
     Dosage: 100 IU, EACH EVENING (BEFORE DINNER)
     Route: 058
     Dates: start: 2017
  3. HUMULIN R U-500 [Suspect]
     Active Substance: INSULIN HUMAN
     Indication: TYPE 2 DIABETES MELLITUS
     Dosage: 100 IU, EACH MORNING (BEFORE BREAKFAST)
     Route: 058
     Dates: start: 2017
  4. HUMULIN R [Suspect]
     Active Substance: INSULIN HUMAN
     Dosage: 100 INTERNATIONAL UNIT, EACH EVENING
     Route: 058
     Dates: start: 2015, end: 2017

REACTIONS (1)
  - Device failure [Recovering/Resolving]

NARRATIVE: CASE EVENT DATE: 20190325
